FAERS Safety Report 16969985 (Version 1)
Quarter: 2019Q4

REPORT INFORMATION
  Report Type: Spontaneous
  Country: BR (occurrence: BR)
  Receive Date: 20191029
  Receipt Date: 20191029
  Transmission Date: 20200122
  Serious: Yes (Other)
  Sender: FDA-Public Use
  Company Number: BR-ELI_LILLY_AND_COMPANY-BR201910009862

PATIENT
  Age: 39 Year
  Sex: Female

DRUGS (2)
  1. HUMULIN N [Suspect]
     Active Substance: INSULIN HUMAN
     Indication: PRODUCT USED FOR UNKNOWN INDICATION
     Dosage: 24 INTERNATIONAL UNIT, EACH EVENING
     Route: 065
  2. HUMULIN N [Suspect]
     Active Substance: INSULIN HUMAN
     Dosage: 12 INTERNATIONAL UNIT, EACH MORNING
     Route: 065

REACTIONS (5)
  - Abortion spontaneous [Unknown]
  - Maternal exposure during pregnancy [Unknown]
  - Abdominal pain [Recovered/Resolved]
  - Dysuria [Recovered/Resolved]
  - Haemorrhage [Unknown]

NARRATIVE: CASE EVENT DATE: 201909
